FAERS Safety Report 20846580 (Version 1)
Quarter: 2022Q2

REPORT INFORMATION
  Report Type: Report from Study
  Country: DE (occurrence: DE)
  Receive Date: 20220518
  Receipt Date: 20220518
  Transmission Date: 20220721
  Serious: Yes (Hospitalization, Other)
  Sender: FDA-Public Use
  Company Number: DE-CELGENE-DEU-20220205509

PATIENT
  Sex: Male
  Weight: 75 kg

DRUGS (11)
  1. LENALIDOMIDE [Suspect]
     Active Substance: LENALIDOMIDE
     Indication: Plasma cell myeloma
     Dosage: FREQUENCY TEXT: NOT PROVIDED?15 MILLIGRAM
     Route: 048
     Dates: start: 20190426, end: 20220130
  2. DEXAMETHASONE [Suspect]
     Active Substance: DEXAMETHASONE
     Indication: Plasma cell myeloma
     Dosage: FREQUENCY TEXT: NOT PROVIDED?20 MILLIGRAM
     Route: 042
     Dates: start: 20190426, end: 20200207
  3. ISATUXIMAB [Suspect]
     Active Substance: ISATUXIMAB
     Indication: Plasma cell myeloma
     Dosage: FREQUENCY TEXT: NOT PROVIDED?770 MILLIGRAM
     Route: 042
     Dates: start: 20200117, end: 20220110
  4. BORTEZOMIB [Suspect]
     Active Substance: BORTEZOMIB
     Indication: Plasma cell myeloma
     Dosage: FREQUENCY TEXT: NOT PROVIDED?13 MILLIGRAM/SQ. METER
     Route: 058
     Dates: start: 20190426, end: 20190819
  5. DENOSUMAB [Suspect]
     Active Substance: DENOSUMAB
     Indication: Necrosis
     Dosage: FREQUENCY TEXT: NOT PROVIDED
     Route: 065
  6. CYCLOPHOSPHAMIDE [Concomitant]
     Active Substance: CYCLOPHOSPHAMIDE
     Indication: Haematopoietic stem cell mobilisation
     Dosage: FREQUENCY TEXT: NOT PROVIDED
     Route: 065
     Dates: start: 20190806
  7. MELPHALAN [Concomitant]
     Active Substance: MELPHALAN
     Indication: Product used for unknown indication
     Dosage: FREQUENCY TEXT: NOT PROVIDED
     Route: 065
     Dates: start: 20191011
  8. gamocyte [Concomitant]
     Indication: Haematopoietic stem cell mobilisation
     Dosage: FREQUENCY TEXT: NOT PROVIDED
     Route: 065
     Dates: start: 20190911
  9. LENALIDOMIDE [Concomitant]
     Active Substance: LENALIDOMIDE
     Indication: Plasma cell myeloma
     Dosage: FREQUENCY: C-C-1
     Route: 048
     Dates: start: 20200409
  10. FOLIC ACID [Concomitant]
     Active Substance: FOLIC ACID
     Indication: Folate deficiency
     Dosage: FREQUENCY: 1 CC
     Route: 048
     Dates: start: 20191104
  11. calcinit [Concomitant]
     Indication: Product used for unknown indication
     Dosage: FREQUENCY: 1-C-1
     Route: 048
     Dates: start: 20190514

REACTIONS (1)
  - Osteonecrosis [Recovered/Resolved]

NARRATIVE: CASE EVENT DATE: 20220131
